FAERS Safety Report 13484464 (Version 6)
Quarter: 2017Q2

REPORT INFORMATION
  Report Type: Report from Study
  Country: BR (occurrence: BR)
  Receive Date: 20170425
  Receipt Date: 20170615
  Transmission Date: 20170830
  Serious: Yes (Other)
  Sender: FDA-Public Use
  Company Number: BR-BRISTOL-MYERS SQUIBB COMPANY-BMS-2017-034926

PATIENT
  Age: 22 Year
  Sex: Female

DRUGS (6)
  1. EFAVIRENZ [Suspect]
     Active Substance: EFAVIRENZ
     Indication: HIV INFECTION
     Dosage: 600 MG, QD
     Route: 065
     Dates: start: 20161118, end: 20170325
  2. METRONIDAZOLE W/NYSTATIN [Concomitant]
     Indication: BACTERIAL VAGINOSIS
     Dosage: UNK, QD
     Route: 061
     Dates: end: 20161201
  3. LAMIVUDINE,ZIDOVUDINE [Suspect]
     Active Substance: LAMIVUDINE\ZIDOVUDINE
     Indication: HIV INFECTION
     Dosage: 450 MG, Q12H
     Route: 065
     Dates: start: 20161118, end: 20170325
  4. ACYCLOVIR                          /00587301/ [Concomitant]
     Active Substance: ACYCLOVIR
     Indication: GENITAL HERPES
     Dosage: UNK UNK, TID
     Route: 061
     Dates: start: 20170125, end: 20170130
  5. BENZATHINE PENICILLIN [Concomitant]
     Active Substance: PENICILLIN G BENZATHINE
     Indication: SYPHILIS
     Dosage: UNK, QWK
     Route: 030
     Dates: end: 20161128
  6. NITROFURANTOIN. [Concomitant]
     Active Substance: NITROFURANTOIN
     Indication: URINARY TRACT INFECTION
     Dosage: UNK UNK, Q6H
     Route: 065
     Dates: start: 20170209, end: 20170216

REACTIONS (6)
  - Bacterial vaginosis [Unknown]
  - Maternal exposure during pregnancy [Recovered/Resolved]
  - Caesarean section [Unknown]
  - Genital herpes [Unknown]
  - Urinary tract infection [Unknown]
  - Live birth [Unknown]

NARRATIVE: CASE EVENT DATE: 201701
